FAERS Safety Report 17358544 (Version 1)
Quarter: 2020Q1

REPORT INFORMATION
  Report Type: Report from Study
  Country: None (occurrence: US)
  Receive Date: 20200201
  Receipt Date: 20200201
  Transmission Date: 20200409
  Serious: Yes (Other)
  Sender: FDA-Public Use
  Company Number: US-ABBVIE-20K-163-3256555-00

PATIENT
  Sex: Female

DRUGS (3)
  1. HUMIRA [Suspect]
     Active Substance: ADALIMUMAB
     Indication: COLITIS ULCERATIVE
  2. HUMIRA [Suspect]
     Active Substance: ADALIMUMAB
     Indication: CROHN^S DISEASE
     Route: 058
  3. HUMIRA [Suspect]
     Active Substance: ADALIMUMAB
     Indication: INFLAMMATORY BOWEL DISEASE

REACTIONS (10)
  - Haemoglobin abnormal [Unknown]
  - Unevaluable event [Unknown]
  - Arthralgia [Unknown]
  - Fatigue [Unknown]
  - Weight decreased [Unknown]
  - Hip surgery [Unknown]
  - Spinal operation [Unknown]
  - Pharyngeal swelling [Unknown]
  - Iron deficiency [Unknown]
  - Amnesia [Unknown]
